FAERS Safety Report 7719619-5 (Version None)
Quarter: 2011Q3

REPORT INFORMATION
  Report Type: 
  Country: None (occurrence: None)
  Receive Date: 20110830
  Receipt Date: 20110825
  Transmission Date: 20111222
  Serious: Yes (Hospitalization)
  Sender: FDA-Public Use
  Company Number: JP-ABBOTT-11P-087-0849756-00

PATIENT
  Age: 66 Year
  Sex: Female

DRUGS (6)
  1. VALPROATE SODIUM [Suspect]
     Indication: FRONTOTEMPORAL DEMENTIA
     Dosage: DAILY
  2. ETIZOLAM [Suspect]
     Indication: FRONTOTEMPORAL DEMENTIA
     Dosage: DAILY
  3. TRAZODONE HYDROCHLORIDE [Suspect]
     Indication: FRONTOTEMPORAL DEMENTIA
     Dosage: DAILY
  4. PHENYTOIN [Suspect]
     Indication: FRONTOTEMPORAL DEMENTIA
     Dosage: DAILY
  5. TRIAZOLAM [Concomitant]
     Indication: DEPRESSION
  6. TIAPRIDE HYDROCHLORIDE [Suspect]
     Indication: FRONTOTEMPORAL DEMENTIA
     Dosage: DAILY

REACTIONS (1)
  - COGNITIVE DISORDER [None]
